FAERS Safety Report 10209136 (Version 1)
Quarter: 2014Q2

REPORT INFORMATION
  Report Type: Spontaneous
  Country: US (occurrence: US)
  Receive Date: 20140530
  Receipt Date: 20140530
  Transmission Date: 20141212
  Serious: Yes (Other)
  Sender: FDA-Public Use
  Company Number: US-PFIZER INC-2014145414

PATIENT
  Age: 27 Year
  Sex: Male
  Weight: 102 kg

DRUGS (1)
  1. ADVIL [Suspect]
     Dosage: 2 OR 3 TABLETS, UNK

REACTIONS (3)
  - Urticaria [Unknown]
  - Swelling [Unknown]
  - Pruritus [Unknown]
